FAERS Safety Report 5743341-8 (Version None)
Quarter: 2008Q2

REPORT INFORMATION
  Report Type: 
  Country: None (occurrence: None)
  Receive Date: 20080519
  Receipt Date: 20080509
  Transmission Date: 20081010
  Serious: Yes (Other)
  Sender: FDA-Public Use
  Company Number: US-PFIZER INC-2008040790

PATIENT

DRUGS (1)
  1. CELEBREX [Suspect]
     Route: 048

REACTIONS (7)
  - ANGIOPATHY [None]
  - ANXIETY [None]
  - ARTERIAL DISORDER [None]
  - CEREBRAL DISORDER [None]
  - LUNG DISORDER [None]
  - MYOCARDIAL INFARCTION [None]
  - RENAL DISORDER [None]
